FAERS Safety Report 23052140 (Version 1)
Quarter: 2023Q4

REPORT INFORMATION
  Report Type: Spontaneous
  Country: US (occurrence: US)
  Receive Date: 20231010
  Receipt Date: 20231010
  Transmission Date: 20240110
  Serious: Yes (Other)
  Sender: FDA-Public Use
  Company Number: US-BEH-2023164160

PATIENT
  Sex: Male

DRUGS (8)
  1. IDELVION [Suspect]
     Active Substance: COAGULATION FACTOR IX RECOMBINANT HUMAN
     Indication: Factor IX deficiency
     Dosage: 5630 INTERNATIONAL UNIT, QW
     Route: 042
     Dates: start: 201301
  2. IDELVION [Suspect]
     Active Substance: COAGULATION FACTOR IX RECOMBINANT HUMAN
     Indication: Factor IX deficiency
     Dosage: 5630 INTERNATIONAL UNIT, QW
     Route: 042
     Dates: start: 201301
  3. IDELVION [Suspect]
     Active Substance: COAGULATION FACTOR IX RECOMBINANT HUMAN
     Dosage: 5630 INTERNATIONAL UNIT, PRN
     Route: 042
     Dates: start: 201301
  4. IDELVION [Suspect]
     Active Substance: COAGULATION FACTOR IX RECOMBINANT HUMAN
     Dosage: 5630 INTERNATIONAL UNIT, PRN
     Route: 042
     Dates: start: 201301
  5. IDELVION [Suspect]
     Active Substance: COAGULATION FACTOR IX RECOMBINANT HUMAN
     Indication: Factor IX deficiency
     Dosage: 5630 INTERNATIONAL UNIT, QW
     Route: 042
     Dates: start: 201301
  6. IDELVION [Suspect]
     Active Substance: COAGULATION FACTOR IX RECOMBINANT HUMAN
     Indication: Factor IX deficiency
     Dosage: 5630 INTERNATIONAL UNIT, QW
     Route: 042
     Dates: start: 201301
  7. IDELVION [Suspect]
     Active Substance: COAGULATION FACTOR IX RECOMBINANT HUMAN
     Dosage: 5630 INTERNATIONAL UNIT, PRN
     Route: 042
     Dates: start: 201301
  8. IDELVION [Suspect]
     Active Substance: COAGULATION FACTOR IX RECOMBINANT HUMAN
     Dosage: 5630 INTERNATIONAL UNIT, PRN
     Route: 042
     Dates: start: 201301

REACTIONS (1)
  - Haemarthrosis [Unknown]
